FAERS Safety Report 9895592 (Version 1)
Quarter: 2014Q1

REPORT INFORMATION
  Report Type: Spontaneous
  Country: US (occurrence: US)
  Receive Date: 20140213
  Receipt Date: 20140213
  Transmission Date: 20141002
  Serious: No
  Sender: FDA-Public Use
  Company Number: US-BRISTOL-MYERS SQUIBB COMPANY-17239187

PATIENT
  Age: 75 Year
  Sex: Female
  Weight: 79.36 kg

DRUGS (3)
  1. ABATACEPT SUBQ INJECTION 125MG/ML [Suspect]
     Indication: RHEUMATOID ARTHRITIS
     Dosage: LAST INJ WAS ON 18DEC2012
     Route: 058
  2. METHOTREXATE SODIUM INJ [Suspect]
  3. LIPITOR [Concomitant]

REACTIONS (2)
  - Rheumatoid arthritis [Unknown]
  - Gastrointestinal disorder [Unknown]
